FAERS Safety Report 12210979 (Version 5)
Quarter: 2016Q3

REPORT INFORMATION
  Report Type: Report from Study
  Country: CH (occurrence: CH)
  Receive Date: 20160325
  Receipt Date: 20160920
  Transmission Date: 20161109
  Serious: Yes (Death)
  Sender: FDA-Public Use
  Company Number: CH-ASTELLAS-2016US010715

PATIENT

DRUGS (1)
  1. TACROLIMUS. [Suspect]
     Active Substance: TACROLIMUS
     Indication: LIVER TRANSPLANT
     Dosage: C0 6-10 NG/ML
     Route: 065

REACTIONS (1)
  - Drug ineffective [Fatal]
